FAERS Safety Report 7094654-1 (Version None)
Quarter: 2010Q4

REPORT INFORMATION
  Report Type: 
  Country: None (occurrence: None)
  Receive Date: 20101110
  Receipt Date: 20101026
  Transmission Date: 20110411
  Serious: Yes (Other)
  Sender: FDA-Public Use
  Company Number: BE-AMGEN-QUU392391

PATIENT

DRUGS (2)
  1. ARANESP [Suspect]
     Indication: RENAL FAILURE CHRONIC
     Dosage: 50 A?G, Q2WK
     Route: 058
     Dates: start: 20080721, end: 20091005
  2. ENBREL [Concomitant]

REACTIONS (5)
  - ANAEMIA [None]
  - APLASIA PURE RED CELL [None]
  - INJECTION SITE PAIN [None]
  - INJECTION SITE PRURITUS [None]
  - THERAPEUTIC RESPONSE DECREASED [None]
